FAERS Safety Report 7638258-8 (Version None)
Quarter: 2011Q3

REPORT INFORMATION
  Report Type: 
  Country: None (occurrence: None)
  Receive Date: 20110727
  Receipt Date: 20110718
  Transmission Date: 20111222
  Serious: Yes (Life-Threatening, Hospitalization, Other)
  Sender: FDA-Public Use
  Company Number: GB-NOVOPROD-330692

PATIENT
  Age: 47 Year
  Sex: Female
  Weight: 89.9 kg

DRUGS (11)
  1. FINASTERIDE [Concomitant]
  2. FEXOFENADINE [Concomitant]
  3. ESTROFEM [Suspect]
     Indication: TRANSGENDER HORMONAL THERAPY
     Dosage: 2 MG, QD
     Route: 048
  4. ALLOPURINOL [Concomitant]
  5. MONTELUKAST SODIUM [Concomitant]
  6. ALBUTEROL [Suspect]
  7. PROGESTERONE [Suspect]
     Indication: TRANSGENDER HORMONAL THERAPY
     Route: 067
  8. PREDNISOLONE [Concomitant]
  9. VANIQA [Concomitant]
  10. SERETIDE [Concomitant]
  11. ATORVASTATIN [Concomitant]

REACTIONS (1)
  - PULMONARY EMBOLISM [None]
